FAERS Safety Report 4724968-9 (Version None)
Quarter: 2005Q3

REPORT INFORMATION
  Report Type: 
  Country: None (occurrence: None)
  Receive Date: 20050722
  Receipt Date: 20050722
  Transmission Date: 20060218
  Serious: Yes (Hospitalization)
  Sender: FDA-Public Use
  Company Number: None

PATIENT
  Age: 47 Year
  Sex: Male

DRUGS (1)
  1. ASPIRIN [Suspect]
     Indication: POLYSUBSTANCE ABUSE
     Dosage: 6500 MG DAILY ORAL
     Route: 048

REACTIONS (5)
  - ABDOMINAL PAIN [None]
  - ENDOSCOPY UPPER GASTROINTESTINAL TRACT ABNORMAL [None]
  - NAUSEA [None]
  - OESOPHAGEAL DISORDER [None]
  - VOMITING [None]
